FAERS Safety Report 23831799 (Version 1)
Quarter: 2024Q2

REPORT INFORMATION
  Report Type: Spontaneous
  Country: GB (occurrence: GB)
  Receive Date: 20240508
  Receipt Date: 20240508
  Transmission Date: 20240716
  Serious: Yes (Hospitalization, Other)
  Sender: FDA-Public Use
  Company Number: GB-TEVA-VS-3194726

PATIENT

DRUGS (1)
  1. ALBUTEROL [Suspect]
     Active Substance: ALBUTEROL
     Indication: Product used for unknown indication
     Dosage: CFC-FREE MDI INHALER?PRODUCT LICENSE NUMBER: PL 00530/0555
     Route: 055

REACTIONS (3)
  - Surgery [Unknown]
  - Lower respiratory tract infection [Unknown]
  - Sepsis [Unknown]
